FAERS Safety Report 4680302-4 (Version None)
Quarter: 2005Q2

REPORT INFORMATION
  Report Type: 
  Country: None (occurrence: None)
  Receive Date: 20050601
  Receipt Date: 20050513
  Transmission Date: 20051028
  Serious: Yes (Death, Hospitalization, Other)
  Sender: FDA-Public Use
  Company Number: 200411193BVD

PATIENT
  Age: 75 Year
  Sex: Female
  Weight: 76 kg

DRUGS (8)
  1. TRASYLOL [Suspect]
     Indication: VASCULAR BYPASS GRAFT
     Dosage: 3000 KIU, TOTAL DAILY, INTRAVENOUS
     Route: 042
     Dates: start: 20040526
  2. HEPARIN [Concomitant]
  3. BETA BLOCKER, NOS [Concomitant]
  4. ANTI-LIPIDE [Concomitant]
  5. ASPIRIN [Concomitant]
  6. DIURETICS [Concomitant]
  7. VASODILATORS [Concomitant]
  8. ACE INHIBITOR [Concomitant]

REACTIONS (4)
  - ANAESTHETIC COMPLICATION NEUROLOGICAL [None]
  - CEREBROVASCULAR ACCIDENT [None]
  - DEPRESSED LEVEL OF CONSCIOUSNESS [None]
  - POST PROCEDURAL COMPLICATION [None]
